FAERS Safety Report 4918121-3 (Version None)
Quarter: 2006Q1

REPORT INFORMATION
  Report Type: 
  Country: None (occurrence: None)
  Receive Date: 20060221
  Receipt Date: 20051013
  Transmission Date: 20060701
  Serious: Yes (Hospitalization, Other)
  Sender: FDA-Public Use
  Company Number: PR-MERCK-0510USA07421

PATIENT
  Age: 86 Year
  Sex: Female
  Weight: 73 kg

DRUGS (10)
  1. VIOXX [Suspect]
     Indication: ARTHRITIS
     Route: 048
     Dates: start: 19990101, end: 20040801
  2. VIOXX [Suspect]
     Route: 048
     Dates: start: 19990101, end: 20040801
  3. VIOXX [Suspect]
     Indication: ARTHRALGIA
     Route: 048
     Dates: start: 19990101, end: 20040801
  4. VIOXX [Suspect]
     Route: 048
     Dates: start: 19990101, end: 20040801
  5. CELEBREX [Concomitant]
     Indication: PAIN
     Route: 065
  6. BEXTRA [Concomitant]
     Indication: PAIN
     Route: 065
  7. ASPIRIN [Concomitant]
     Indication: PAIN
     Route: 065
  8. ADVIL [Concomitant]
     Route: 065
  9. ACETAMINOPHEN [Concomitant]
     Route: 065
  10. TYLENOL [Concomitant]
     Route: 065

REACTIONS (14)
  - ACUTE MYOCARDIAL INFARCTION [None]
  - CARDIAC DISORDER [None]
  - CHEST PAIN [None]
  - CORONARY ARTERY DISEASE [None]
  - DISORIENTATION [None]
  - HYPERTENSION [None]
  - ISCHAEMIC CEREBRAL INFARCTION [None]
  - LOSS OF CONSCIOUSNESS [None]
  - MENINGIOMA [None]
  - MYOCARDIAL INFARCTION [None]
  - PAIN IN EXTREMITY [None]
  - PRESCRIBED OVERDOSE [None]
  - SINUSITIS [None]
  - SYNCOPE [None]
